FAERS Safety Report 10015552 (Version 1)
Quarter: 2014Q1

REPORT INFORMATION
  Report Type: Spontaneous
  Country: US (occurrence: US)
  Receive Date: 20140317
  Receipt Date: 20140317
  Transmission Date: 20141002
  Serious: Yes (Other)
  Sender: FDA-Public Use
  Company Number: US-JNJFOC-20140303524

PATIENT
  Sex: 0

DRUGS (4)
  1. DOXORUBICIN [Suspect]
     Indication: SARCOMA METASTATIC
     Dosage: ON DAY 4 OF EVERY 21 DAY CYCLE
     Route: 042
  2. DOXORUBICIN [Suspect]
     Indication: SARCOMA METASTATIC
     Dosage: ON DAY 4 OF EVERY 21 DAY CYCLE
     Route: 042
  3. ABEXINOSTAT [Suspect]
     Indication: SARCOMA METASTATIC
     Dosage: IN ARM A, 30 OR 15MG/M2??IN ARM B, 30, 45, OR 60 MG/M2
     Route: 065
  4. GRANULOCYTE COLONY-STIMULATING FACTOR NOS [Concomitant]
     Indication: PRODUCT USED FOR UNKNOWN INDICATION
     Route: 065

REACTIONS (25)
  - Thrombocytopenia [Unknown]
  - Anaemia [Unknown]
  - Infection [Unknown]
  - Platelet disorder [Unknown]
  - Haemoglobin abnormal [Unknown]
  - Neutrophil count abnormal [Unknown]
  - White blood cell disorder [Unknown]
  - Hyperglycaemia [Unknown]
  - Electrocardiogram QT interval abnormal [Unknown]
  - Hypophosphataemia [Unknown]
  - Lymphopenia [Unknown]
  - Hypomagnesaemia [Unknown]
  - Hyponatraemia [Unknown]
  - Neutrophil count abnormal [Unknown]
  - Disease progression [Unknown]
  - Diarrhoea [Unknown]
  - Nausea [Unknown]
  - Fatigue [Unknown]
  - Constipation [Unknown]
  - Pain in extremity [Unknown]
  - Alopecia [Unknown]
  - Pain [Unknown]
  - Dysgeusia [Unknown]
  - Off label use [Unknown]
  - Decreased appetite [Unknown]
